FAERS Safety Report 6700729-6 (Version None)
Quarter: 2010Q2

REPORT INFORMATION
  Report Type: 
  Country: None (occurrence: None)
  Receive Date: 20100428
  Receipt Date: 20100422
  Transmission Date: 20101027
  Serious: Yes (Hospitalization)
  Sender: FDA-Public Use
  Company Number: US-MERCK-1004USA01921

PATIENT
  Age: 62 Year
  Sex: Female

DRUGS (3)
  1. HYZAAR [Suspect]
     Indication: BLOOD PRESSURE
     Route: 048
     Dates: start: 20060101, end: 20070101
  2. BUSPAR [Concomitant]
     Route: 065
  3. XANAX [Concomitant]
     Route: 065

REACTIONS (3)
  - DEHYDRATION [None]
  - FEELING HOT [None]
  - SYNCOPE [None]
